FAERS Safety Report 9280361 (Version 3)
Quarter: 2013Q3

REPORT INFORMATION
  Report Type: Report from Study
  Country: US (occurrence: US)
  Receive Date: 20130509
  Receipt Date: 20130911
  Transmission Date: 20140515
  Serious: Yes (Hospitalization)
  Sender: FDA-Public Use
  Company Number: US-ROCHE-1220560

PATIENT
  Age: 56 Year
  Sex: Female
  Weight: 55.2 kg

DRUGS (1)
  1. TRASTUZUMAB [Suspect]
     Indication: METASTASES TO MENINGES
     Route: 037
     Dates: start: 20130423, end: 20130510

REACTIONS (6)
  - Headache [Recovered/Resolved]
  - Neck pain [Not Recovered/Not Resolved]
  - Back pain [Recovering/Resolving]
  - Pain in extremity [Recovering/Resolving]
  - Diarrhoea [Recovered/Resolved]
  - Enterocolitis infectious [Recovered/Resolved]
